FAERS Safety Report 5884331-4 (Version None)
Quarter: 2008Q3

REPORT INFORMATION
  Report Type: 
  Country: None (occurrence: None)
  Receive Date: 20080915
  Receipt Date: 20080909
  Transmission Date: 20090109
  Serious: Yes (Hospitalization)
  Sender: FDA-Public Use
  Company Number: GB-GENENTECH-249936

PATIENT
  Sex: Female

DRUGS (6)
  1. AVASTIN [Suspect]
     Indication: NON-SMALL CELL LUNG CANCER
     Dosage: 1047 MG, UNK
     Route: 042
     Dates: start: 20070924
  2. RSHAPO2L-TRAIL [Suspect]
     Indication: NON-SMALL CELL LUNG CANCER
     Dosage: 1400 MG, UNK
     Route: 042
     Dates: start: 20070924
  3. IBUPROFEN [Concomitant]
     Indication: DRUG USE FOR UNKNOWN INDICATION
  4. ACETAMINOPHEN [Concomitant]
     Indication: DRUG USE FOR UNKNOWN INDICATION
  5. CODEINE SUL TAB [Concomitant]
     Indication: DRUG USE FOR UNKNOWN INDICATION
     Dosage: 60 MG, QID
  6. LEVOTHYROXINE SODIUM [Concomitant]
     Indication: DRUG USE FOR UNKNOWN INDICATION
     Dosage: 75 A?G, QD

REACTIONS (1)
  - BODY TEMPERATURE INCREASED [None]
